FAERS Safety Report 4938858-X (Version None)
Quarter: 2006Q1

REPORT INFORMATION
  Report Type: 
  Country: None (occurrence: None)
  Receive Date: 20060306
  Receipt Date: 20060223
  Transmission Date: 20060701
  Serious: Yes (Other)
  Sender: FDA-Public Use
  Company Number: 2006026797

PATIENT
  Sex: Female
  Weight: 63.5036 kg

DRUGS (4)
  1. LIPITOR [Suspect]
     Indication: BLOOD CHOLESTEROL INCREASED
     Dosage: (10 MG)
  2. SYNTHROID [Concomitant]
  3. FOSAMAX (ALENDROANTAE SODIUM) [Concomitant]
  4. VITAMINS (VITAMINS) [Concomitant]

REACTIONS (5)
  - ASTHENIA [None]
  - BLOOD CREATINE PHOSPHOKINASE INCREASED [None]
  - LUMBAR SPINAL STENOSIS [None]
  - MYALGIA [None]
  - NECK PAIN [None]
